FAERS Safety Report 8165440-6 (Version None)
Quarter: 2012Q1

REPORT INFORMATION
  Report Type: 
  Country: None (occurrence: None)
  Receive Date: 20120103
  Receipt Date: 20111011
  Transmission Date: 20120608
  Serious: No
  Sender: FDA-Public Use
  Company Number: AE-2011-002266

PATIENT
  Age: 53 Year
  Sex: Male
  Weight: 115.6672 kg

DRUGS (7)
  1. MULTIVITAMIN [Concomitant]
  2. GABAPENTIN [Concomitant]
  3. INCIVEK [Suspect]
     Dosage: 2250 MG (750 MG, 1 IN 8 HR), ORAL
     Route: 048
     Dates: start: 20110928
  4. RIBAVIRIN [Concomitant]
  5. PEGASYS [Concomitant]
  6. ASPIRIN [Concomitant]
  7. CELEXA [Concomitant]

REACTIONS (1)
  - HEADACHE [None]
